FAERS Safety Report 18573023 (Version 1)
Quarter: 2020Q4

REPORT INFORMATION
  Report Type: Spontaneous
  Country: US (occurrence: US)
  Receive Date: 20201203
  Receipt Date: 20201203
  Transmission Date: 20210114
  Serious: No
  Sender: FDA-Public Use
  Company Number: US-ALLERGAN-2038288US

PATIENT
  Age: 58 Year
  Sex: Female

DRUGS (17)
  1. DALVANCE [Suspect]
     Active Substance: DALBAVANCIN
     Indication: WOUND
  2. RIZATRIPTAN. [Concomitant]
     Active Substance: RIZATRIPTAN
     Indication: MIGRAINE
  3. IRON [Concomitant]
     Active Substance: IRON
  4. VITAMIN B [Concomitant]
     Active Substance: VITAMIN B
  5. DALVANCE [Suspect]
     Active Substance: DALBAVANCIN
     Indication: CELLULITIS
     Dosage: 1500 MG, SINGLE
     Dates: start: 20200925, end: 20200925
  6. PERCOCET [Concomitant]
     Active Substance: ACETAMINOPHEN\OXYCODONE HYDROCHLORIDE
     Indication: PAIN
  7. PRAMIPEXOLE. [Concomitant]
     Active Substance: PRAMIPEXOLE
  8. MAGNESIUM [Concomitant]
     Active Substance: MAGNESIUM
  9. DICLOFENAC [Concomitant]
     Active Substance: DICLOFENAC
  10. ZOFRAN [Concomitant]
     Active Substance: ONDANSETRON HYDROCHLORIDE
     Indication: NAUSEA
  11. DULOXETINE. [Concomitant]
     Active Substance: DULOXETINE
  12. GABAPENTIN. [Concomitant]
     Active Substance: GABAPENTIN
  13. ASPIRIN. [Concomitant]
     Active Substance: ASPIRIN
  14. FENTANYL. [Concomitant]
     Active Substance: FENTANYL
     Indication: PAIN
  15. ACETAZOLAMIDE. [Concomitant]
     Active Substance: ACETAZOLAMIDE
  16. BUMEX [Concomitant]
     Active Substance: BUMETANIDE
  17. POTASSIUM [Concomitant]
     Active Substance: POTASSIUM

REACTIONS (5)
  - Headache [Recovered/Resolved]
  - Rash [Recovered/Resolved]
  - Nausea [Recovered/Resolved]
  - Urinary tract infection [Recovered/Resolved]
  - Blood urine present [Recovered/Resolved]
